FAERS Safety Report 8673326 (Version 2)
Quarter: 2014Q3

REPORT INFORMATION
  Report Type: Spontaneous
  Country: US (occurrence: US)
  Receive Date: 20120719
  Receipt Date: 20140924
  Transmission Date: 20150326
  Serious: Yes (Death)
  Sender: FDA-Public Use
  Company Number: US-BIOMARINP-002753

PATIENT
  Age: 23 Year
  Sex: Male
  Weight: 48.98 kg

DRUGS (2)
  1. NAGLAZYME [Suspect]
     Active Substance: GALSULFASE
     Dosage: 45MG,QW
     Route: 041
     Dates: start: 20100203
  2. NAGLAZYME [Suspect]
     Active Substance: GALSULFASE
     Indication: MUCOPOLYSACCHARIDOSIS VI
     Dosage: 50MG, QW
     Route: 041
     Dates: start: 20120530

REACTIONS (2)
  - Death [Fatal]
  - Choking [Unknown]

NARRATIVE: CASE EVENT DATE: 20120717
